FAERS Safety Report 24609093 (Version 1)
Quarter: 2024Q4

REPORT INFORMATION
  Report Type: Spontaneous
  Country: CA (occurrence: CA)
  Receive Date: 20241112
  Receipt Date: 20241112
  Transmission Date: 20250114
  Serious: Yes (Death, Other)
  Sender: SANDOZ
  Company Number: CA-SANDOZ-SDZ2024CA094253

PATIENT
  Sex: Male

DRUGS (1)
  1. WYOST [Suspect]
     Active Substance: DENOSUMAB-BBDZ
     Indication: Plasma cell myeloma
     Dosage: 120MG/1.7ML;MONTHLY (Q 4 WEEKS)
     Route: 058
     Dates: start: 20241011

REACTIONS (1)
  - Death [Fatal]
